FAERS Safety Report 5190038-1 (Version None)
Quarter: 2006Q4

REPORT INFORMATION
  Report Type: 
  Country: None (occurrence: None)
  Receive Date: 20061215
  Receipt Date: 20061204
  Transmission Date: 20070319
  Serious: Yes (Life-Threatening, Hospitalization)
  Sender: FDA-Public Use
  Company Number: B0450002A

PATIENT
  Age: 55 Year
  Sex: Male

DRUGS (1)
  1. ALBENDAZOLE [Suspect]
     Indication: STRONGYLOIDIASIS
     Dosage: 400 MG / TWICE PER DAY /

REACTIONS (5)
  - ANEURYSM [None]
  - HAEMOGLOBIN DECREASED [None]
  - HYPOVOLAEMIC SHOCK [None]
  - SMALL INTESTINAL HAEMORRHAGE [None]
  - VASCULITIS [None]
